FAERS Safety Report 4968650-1 (Version None)
Quarter: 2006Q2

REPORT INFORMATION
  Report Type: 
  Country: None (occurrence: None)
  Receive Date: 20060405
  Receipt Date: 20060321
  Transmission Date: 20061013
  Serious: Yes (Death, Hospitalization)
  Sender: FDA-Public Use
  Company Number: 2006040684

PATIENT
  Age: 76 Year
  Sex: Male

DRUGS (12)
  1. FLUCONAZOLE [Suspect]
     Indication: ILL-DEFINED DISORDER
     Dosage: SEE IMAGE
     Dates: start: 20060107, end: 20060101
  2. FLUCONAZOLE [Suspect]
     Indication: ILL-DEFINED DISORDER
     Dosage: SEE IMAGE
     Dates: start: 20060101, end: 20060116
  3. FLUCONAZOLE [Suspect]
     Indication: ILL-DEFINED DISORDER
     Dosage: SEE IMAGE
     Dates: start: 20060116, end: 20060211
  4. CIPROFLOXACIN HCL [Suspect]
     Indication: ILL-DEFINED DISORDER
     Dosage: 1 DOSE FORM (1 IN 1 D), ORAL
     Route: 048
     Dates: start: 20060116, end: 20060211
  5. REPAGLINIDE [Suspect]
     Indication: ILL-DEFINED DISORDER
     Dosage: ORAL
     Route: 048
     Dates: start: 20060120, end: 20060211
  6. HALOPERIDOL [Suspect]
     Indication: ILL-DEFINED DISORDER
     Dosage: 10 DOSE FORMS (1 IN 1 D), ORAL
     Route: 048
     Dates: start: 20060131
  7. PREDNISONE TAB [Suspect]
     Indication: ILL-DEFINED DISORDER
     Dosage: 15 MG (20 MG, 1 IN 1 D), ORAL
     Route: 048
     Dates: start: 20060207
  8. VALACICLOVIR CHLORHYDRATE (VALACICLOVIR HYDROCHLORIDE) [Concomitant]
  9. ESOMEPRAZOLE MAGNESIUM TRIHYDRATE (ESOMEPRAZOLE) [Concomitant]
  10. INSULINE GLARGINE (INSULIN) [Concomitant]
  11. INSULINE ASPARTE (INSULIN ASPART) [Concomitant]
  12. AZATHIOPRINE [Concomitant]

REACTIONS (6)
  - ACIDOSIS [None]
  - BLOOD LACTIC ACID INCREASED [None]
  - DRUG LEVEL INCREASED [None]
  - HEPATITIS [None]
  - HYPERTHERMIA [None]
  - RESPIRATORY FAILURE [None]
